FAERS Safety Report 8086138-9 (Version None)
Quarter: 2012Q1

REPORT INFORMATION
  Report Type: 
  Country: None (occurrence: None)
  Receive Date: 20120128
  Receipt Date: 20110412
  Transmission Date: 20120608
  Serious: No
  Sender: FDA-Public Use
  Company Number: US-ABBOTT-11P-163-0719071-00

PATIENT
  Sex: Male
  Weight: 90.8 kg

DRUGS (6)
  1. METHOTREXATE [Concomitant]
     Indication: CROHN'S DISEASE
     Dates: start: 20110310
  2. MULTI-VITAMINS [Concomitant]
     Indication: VITAMIN SUPPLEMENTATION
  3. HUMIRA [Suspect]
     Indication: EYE DISORDER
     Dates: start: 20110407, end: 20110407
  4. HUMIRA [Suspect]
     Indication: CROHN'S DISEASE
     Dates: start: 20110324, end: 20110324
  5. OMEPRAZOLE [Concomitant]
     Indication: GASTROOESOPHAGEAL REFLUX DISEASE
     Route: 048
     Dates: start: 20110216
  6. CLARITIN [Concomitant]
     Indication: HYPERSENSITIVITY

REACTIONS (2)
  - HYPERSOMNIA [None]
  - DRUG INEFFECTIVE [None]
